FAERS Safety Report 8167650-0 (Version None)
Quarter: 2012Q1

REPORT INFORMATION
  Report Type: 
  Country: None (occurrence: None)
  Receive Date: 20120227
  Receipt Date: 20120221
  Transmission Date: 20120608
  Serious: Yes (Other)
  Sender: FDA-Public Use
  Company Number: JP-ROCHE-1041427

PATIENT
  Sex: Female
  Weight: 44 kg

DRUGS (7)
  1. BESACOLIN [Concomitant]
     Route: 048
     Dates: start: 20100105
  2. XELODA [Suspect]
     Dosage: IT IS ONE ADMINISTERING WEEKLY HOLIDAY MEDICINE FOR TWO WEEKS.
     Route: 048
     Dates: start: 20110513, end: 20120119
  3. XELODA [Suspect]
     Indication: RECTAL CANCER METASTATIC
     Route: 048
     Dates: start: 20100205, end: 20100521
  4. SEVEN E-P [Concomitant]
     Route: 048
     Dates: start: 20100611
  5. MIYA BM [Concomitant]
     Route: 048
     Dates: start: 20100611
  6. ALBUMIN TANNATE [Concomitant]
     Route: 048
     Dates: start: 20100618
  7. OXALIPLATIN [Concomitant]
     Indication: RECTAL CANCER METASTATIC
     Route: 041
     Dates: start: 20100205, end: 20100521

REACTIONS (1)
  - PULMONARY ARTERY THROMBOSIS [None]
